FAERS Safety Report 22336731 (Version 1)
Quarter: 2023Q2

REPORT INFORMATION
  Report Type: Spontaneous
  Country: US (occurrence: None)
  Receive Date: 20230517
  Receipt Date: 20230517
  Transmission Date: 20230722
  Serious: Yes (Life-Threatening, Other)
  Sender: FDA-Public Use
  Company Number: None

PATIENT
  Age: 64 Year
  Sex: Male
  Weight: 99.9 kg

DRUGS (2)
  1. LAMOTRIGINE [Suspect]
     Active Substance: LAMOTRIGINE
     Indication: Bipolar disorder
     Dosage: OTHER QUANTITY : 60 TABLET(S);?FREQUENCY : DAILY;?
     Route: 048
     Dates: start: 20230504, end: 20230513
  2. METFORMIN [Concomitant]
     Active Substance: METFORMIN HYDROCHLORIDE

REACTIONS (8)
  - Adverse drug reaction [None]
  - Aggression [None]
  - Muscle twitching [None]
  - Tic [None]
  - Headache [None]
  - Screaming [None]
  - Suicidal ideation [None]
  - Tremor [None]

NARRATIVE: CASE EVENT DATE: 20230515
